FAERS Safety Report 5767428-9 (Version None)
Quarter: 2008Q2

REPORT INFORMATION
  Report Type: 
  Country: None (occurrence: None)
  Receive Date: 20080612
  Receipt Date: 20080606
  Transmission Date: 20081010
  Serious: Yes (Disabling)
  Sender: FDA-Public Use
  Company Number: CA-ASTRAZENECA-2008UW10472

PATIENT
  Age: 65 Year
  Sex: Male

DRUGS (5)
  1. CRESTOR [Suspect]
     Route: 048
     Dates: start: 20080508, end: 20080526
  2. WARFARIN SODIUM [Concomitant]
  3. METOPROLOL [Concomitant]
     Route: 048
  4. SYNTHROID [Concomitant]
  5. COVERSYL PLUS [Concomitant]

REACTIONS (4)
  - DEAFNESS [None]
  - DIZZINESS [None]
  - MIDDLE EAR EFFUSION [None]
  - VERTIGO [None]
